FAERS Safety Report 17094541 (Version 2)
Quarter: 2019Q4

REPORT INFORMATION
  Report Type: Report from Study
  Country: DE (occurrence: DE)
  Receive Date: 20191129
  Receipt Date: 20191213
  Transmission Date: 20200122
  Serious: Yes (Hospitalization, Disabling, Other)
  Sender: FDA-Public Use
  Company Number: DE-BAXTER-2019BAX024427

PATIENT
  Age: 67 Year
  Sex: Female
  Weight: 130 kg

DRUGS (73)
  1. DOXIL [Suspect]
     Active Substance: DOXORUBICIN HYDROCHLORIDE
     Route: 041
     Dates: start: 20190427, end: 20190427
  2. ENDOXAN 1G [Suspect]
     Active Substance: CYCLOPHOSPHAMIDE
     Indication: DIFFUSE LARGE B-CELL LYMPHOMA
     Route: 041
     Dates: start: 20190222, end: 20190222
  3. ENDOXAN 1G [Suspect]
     Active Substance: CYCLOPHOSPHAMIDE
     Route: 041
     Dates: start: 20190606, end: 20190606
  4. VINCRISTINE [Suspect]
     Active Substance: VINCRISTINE
     Route: 041
     Dates: start: 20190427, end: 20190427
  5. ZOPICLONE [Concomitant]
     Active Substance: ZOPICLONE
     Indication: GENERAL PHYSICAL HEALTH DETERIORATION
     Route: 048
     Dates: start: 20190223, end: 20190223
  6. INNOHEP [Concomitant]
     Active Substance: TINZAPARIN SODIUM
     Indication: PANCYTOPENIA
     Route: 065
     Dates: start: 20190507, end: 20190510
  7. VALACICLOVIR [Concomitant]
     Active Substance: VALACYCLOVIR HYDROCHLORIDE
     Indication: PROPHYLAXIS
     Route: 048
     Dates: start: 20190220, end: 20190303
  8. ENDOXAN 1G [Suspect]
     Active Substance: CYCLOPHOSPHAMIDE
     Route: 041
     Dates: start: 20190315, end: 20190315
  9. RITUXIMAB. [Suspect]
     Active Substance: RITUXIMAB
     Indication: DIFFUSE LARGE B-CELL LYMPHOMA
     Route: 041
     Dates: start: 20190221, end: 20190221
  10. VINCRISTINE [Suspect]
     Active Substance: VINCRISTINE
     Route: 041
     Dates: start: 20190406, end: 20190406
  11. VINCRISTINE [Suspect]
     Active Substance: VINCRISTINE
     Route: 041
     Dates: start: 20190606, end: 20190606
  12. VALTREX [Concomitant]
     Active Substance: VALACYCLOVIR HYDROCHLORIDE
     Route: 048
     Dates: start: 20190830
  13. DESLORATADIN [Concomitant]
     Active Substance: DESLORATADINE
     Indication: GENERAL PHYSICAL HEALTH DETERIORATION
     Route: 048
     Dates: start: 20190220
  14. PREDNISOLONE SODIUM SUCCINATE [Concomitant]
     Active Substance: PREDNISOLONE SODIUM SUCCINATE
     Indication: PRODUCT USED FOR UNKNOWN INDICATION
     Route: 042
     Dates: start: 20190221, end: 20190221
  15. COTRIM FORTE [Concomitant]
     Active Substance: SULFAMETHOXAZOLE\TRIMETHOPRIM
     Indication: PROPHYLAXIS
     Route: 048
     Dates: start: 20190222
  16. TINZAPARIN [Concomitant]
     Active Substance: TINZAPARIN
     Indication: PROPHYLAXIS
  17. TAVOR [Concomitant]
     Indication: GENERAL PHYSICAL HEALTH DETERIORATION
     Route: 048
     Dates: start: 20190831, end: 20190831
  18. DOXIL [Suspect]
     Active Substance: DOXORUBICIN HYDROCHLORIDE
     Indication: DIFFUSE LARGE B-CELL LYMPHOMA
     Route: 041
     Dates: start: 20190222, end: 20190222
  19. DOXIL [Suspect]
     Active Substance: DOXORUBICIN HYDROCHLORIDE
     Route: 041
     Dates: start: 20190406, end: 20190406
  20. RANITIDINE HYDROCHLORIDE. [Concomitant]
     Active Substance: RANITIDINE HYDROCHLORIDE
     Indication: GENERAL PHYSICAL HEALTH DETERIORATION
     Route: 042
     Dates: start: 20190221, end: 20190221
  21. INNOHEP [Concomitant]
     Active Substance: TINZAPARIN SODIUM
     Route: 042
     Dates: start: 20190807, end: 20190807
  22. TINZAPARIN [Concomitant]
     Active Substance: TINZAPARIN
     Indication: GENERAL PHYSICAL HEALTH DETERIORATION
     Route: 058
     Dates: start: 20190220, end: 20190228
  23. TORASEMID [Concomitant]
     Active Substance: TORSEMIDE
     Indication: GENERAL PHYSICAL HEALTH DETERIORATION
     Route: 048
     Dates: start: 20180807
  24. DOXIL [Suspect]
     Active Substance: DOXORUBICIN HYDROCHLORIDE
     Route: 041
     Dates: start: 20190315, end: 20190315
  25. DOXIL [Suspect]
     Active Substance: DOXORUBICIN HYDROCHLORIDE
     Route: 041
     Dates: start: 20190516
  26. DOXIL [Suspect]
     Active Substance: DOXORUBICIN HYDROCHLORIDE
     Route: 041
     Dates: start: 20190606, end: 20190606
  27. VINCRISTINE [Suspect]
     Active Substance: VINCRISTINE
     Indication: DIFFUSE LARGE B-CELL LYMPHOMA
     Route: 041
     Dates: start: 20190222, end: 20190222
  28. MOVICOL [Concomitant]
     Active Substance: POLYETHYLENE GLYCOL 3350\POTASSIUM CHLORIDE\SODIUM BICARBONATE\SODIUM CHLORIDE
     Indication: GENERAL PHYSICAL HEALTH DETERIORATION
     Route: 048
     Dates: start: 20190304
  29. NACL [Concomitant]
     Active Substance: SODIUM CHLORIDE
     Route: 042
     Dates: start: 20190516, end: 20190516
  30. UROMITEXAN [Concomitant]
     Active Substance: MESNA
     Indication: GENERAL PHYSICAL HEALTH DETERIORATION
     Route: 042
     Dates: start: 20190222, end: 20190222
  31. GRANISETRON [Concomitant]
     Active Substance: GRANISETRON
     Indication: GENERAL PHYSICAL HEALTH DETERIORATION
     Route: 042
     Dates: start: 20190222, end: 20190222
  32. VALTREX [Concomitant]
     Active Substance: VALACYCLOVIR HYDROCHLORIDE
     Indication: PROPHYLAXIS
     Route: 048
     Dates: start: 20190220, end: 20190303
  33. INNOHEP [Concomitant]
     Active Substance: TINZAPARIN SODIUM
     Indication: PROPHYLAXIS
     Route: 058
     Dates: start: 20190220, end: 20190228
  34. TAVEGIL [Concomitant]
     Active Substance: CLEMASTINE FUMARATE
     Indication: GENERAL PHYSICAL HEALTH DETERIORATION
     Route: 042
     Dates: start: 20190221, end: 20190221
  35. FORTECORTIN [Concomitant]
     Active Substance: DEXAMETHASONE
     Indication: DIFFUSE LARGE B-CELL LYMPHOMA
     Route: 065
     Dates: start: 20190516, end: 20190516
  36. TINZAPARIN [Concomitant]
     Active Substance: TINZAPARIN
     Indication: PANCYTOPENIA
     Route: 065
     Dates: start: 20190507, end: 20190510
  37. METOPROLOL. [Concomitant]
     Active Substance: METOPROLOL
     Indication: GENERAL PHYSICAL HEALTH DETERIORATION
     Route: 048
     Dates: start: 20190807
  38. ENDOXAN 1G [Suspect]
     Active Substance: CYCLOPHOSPHAMIDE
     Route: 041
     Dates: start: 20190406, end: 20190406
  39. ENDOXAN 1G [Suspect]
     Active Substance: CYCLOPHOSPHAMIDE
     Route: 041
     Dates: start: 20190427, end: 20190427
  40. RITUXIMAB. [Suspect]
     Active Substance: RITUXIMAB
     Route: 041
     Dates: start: 20190405, end: 20190405
  41. RITUXIMAB. [Suspect]
     Active Substance: RITUXIMAB
     Route: 041
     Dates: start: 20190315, end: 20190315
  42. PREDNISONE. [Suspect]
     Active Substance: PREDNISONE
     Route: 048
     Dates: start: 20190315, end: 20190319
  43. PREDNISONE. [Suspect]
     Active Substance: PREDNISONE
     Route: 048
     Dates: start: 20190516, end: 20190520
  44. NACL [Concomitant]
     Active Substance: SODIUM CHLORIDE
     Indication: GENERAL PHYSICAL HEALTH DETERIORATION
     Route: 042
     Dates: start: 20190224, end: 20190301
  45. AMPHO-MORONAL [Concomitant]
     Active Substance: AMPHOTERICIN B
     Indication: PROPHYLAXIS
     Route: 048
     Dates: start: 20190221
  46. BISOPROLOL [Concomitant]
     Active Substance: BISOPROLOL
     Indication: HYPERTENSION
     Route: 048
     Dates: start: 20190221
  47. NEULASTA [Concomitant]
     Active Substance: PEGFILGRASTIM
     Indication: GENERAL PHYSICAL HEALTH DETERIORATION
     Route: 058
     Dates: start: 20190225, end: 20190225
  48. KEVATRIL [Concomitant]
     Active Substance: GRANISETRON HYDROCHLORIDE
     Indication: GENERAL PHYSICAL HEALTH DETERIORATION
     Route: 042
     Dates: start: 20190516, end: 20190516
  49. ENDOXAN 1G [Suspect]
     Active Substance: CYCLOPHOSPHAMIDE
     Route: 041
     Dates: start: 20190516, end: 20190516
  50. RITUXIMAB. [Suspect]
     Active Substance: RITUXIMAB
     Route: 041
     Dates: start: 20190516, end: 20190516
  51. ALLOPURINOL. [Concomitant]
     Active Substance: ALLOPURINOL
     Indication: GENERAL PHYSICAL HEALTH DETERIORATION
     Route: 048
     Dates: start: 20190221
  52. DEKRISTOL [Concomitant]
     Active Substance: CHOLECALCIFEROL
     Indication: GENERAL PHYSICAL HEALTH DETERIORATION
     Route: 048
     Dates: start: 20190221
  53. LAVANID [Concomitant]
     Indication: GENERAL PHYSICAL HEALTH DETERIORATION
     Route: 062
     Dates: start: 20190220, end: 20190228
  54. RITUXIMAB. [Suspect]
     Active Substance: RITUXIMAB
     Route: 041
     Dates: start: 20190314, end: 20190314
  55. PREDNISONE. [Suspect]
     Active Substance: PREDNISONE
     Indication: DIFFUSE LARGE B-CELL LYMPHOMA
     Route: 048
     Dates: start: 20190222, end: 20190226
  56. PREDNISONE. [Suspect]
     Active Substance: PREDNISONE
     Route: 048
     Dates: start: 20190406, end: 20190410
  57. PREDNISONE. [Suspect]
     Active Substance: PREDNISONE
     Route: 048
     Dates: start: 20190427, end: 20190501
  58. VINCRISTINE [Suspect]
     Active Substance: VINCRISTINE
     Route: 041
     Dates: start: 20190315, end: 20190315
  59. LEVOFLOXACIN. [Concomitant]
     Active Substance: LEVOFLOXACIN
     Indication: GENERAL PHYSICAL HEALTH DETERIORATION
     Route: 048
     Dates: start: 20190304
  60. RANITIDINE HYDROCHLORIDE. [Concomitant]
     Active Substance: RANITIDINE HYDROCHLORIDE
     Route: 042
     Dates: start: 20190516, end: 20190516
  61. STEROFUNDIN [Concomitant]
     Active Substance: CALCIUM CHLORIDE\MAGNESIUM CHLORIDE\POTASSIUM CHLORIDE\SODIUM ACETATE\SODIUM CHLORIDE
     Indication: GENERAL PHYSICAL HEALTH DETERIORATION
     Route: 042
     Dates: start: 20190220, end: 20190224
  62. PANTOPRAZOL [Concomitant]
     Active Substance: PANTOPRAZOLE SODIUM
     Indication: GENERAL PHYSICAL HEALTH DETERIORATION
     Route: 048
     Dates: start: 20190304
  63. TAVEGIL [Concomitant]
     Active Substance: CLEMASTINE FUMARATE
     Route: 042
     Dates: start: 20190516, end: 20190516
  64. FORTECORTIN [Concomitant]
     Active Substance: DEXAMETHASONE
     Route: 065
     Dates: start: 20190831
  65. RITUXIMAB. [Suspect]
     Active Substance: RITUXIMAB
     Route: 041
     Dates: start: 20190426, end: 20190426
  66. RITUXIMAB. [Suspect]
     Active Substance: RITUXIMAB
     Route: 041
     Dates: start: 20190606
  67. PREDNISONE. [Suspect]
     Active Substance: PREDNISONE
     Route: 048
     Dates: start: 20190606
  68. VINCRISTINE [Suspect]
     Active Substance: VINCRISTINE
     Route: 041
     Dates: start: 20190516, end: 20190516
  69. LASIX [Concomitant]
     Active Substance: FUROSEMIDE
     Indication: GENERAL PHYSICAL HEALTH DETERIORATION
     Route: 042
     Dates: start: 20190224, end: 20190228
  70. MELPERON [Concomitant]
     Active Substance: MELPERONE
     Indication: GENERAL PHYSICAL HEALTH DETERIORATION
     Route: 048
     Dates: start: 20190224, end: 20190228
  71. ECURAL [Concomitant]
     Active Substance: MOMETASONE
     Indication: DERMATITIS
     Route: 062
     Dates: start: 20190225, end: 20190303
  72. PARACETAMOL [Concomitant]
     Active Substance: ACETAMINOPHEN
     Indication: GENERAL PHYSICAL HEALTH DETERIORATION
     Route: 048
     Dates: start: 20190516, end: 20190516
  73. L-THYROXIN [Concomitant]
     Active Substance: LEVOTHYROXINE SODIUM
     Indication: GENERAL PHYSICAL HEALTH DETERIORATION
     Route: 048
     Dates: start: 20190807

REACTIONS (16)
  - Urinary retention [Recovered/Resolved]
  - Communication disorder [Not Recovered/Not Resolved]
  - Memory impairment [Not Recovered/Not Resolved]
  - Pancytopenia [Recovered/Resolved]
  - Metastases to central nervous system [Not Recovered/Not Resolved]
  - Neutropenic sepsis [Unknown]
  - Cough [Unknown]
  - Pyrexia [Recovered/Resolved]
  - Neutropenia [Unknown]
  - Anaemia [Not Recovered/Not Resolved]
  - Dermatitis [Recovered/Resolved]
  - Acute kidney injury [Unknown]
  - Leukopenia [Not Recovered/Not Resolved]
  - Tumour lysis syndrome [Recovered/Resolved]
  - Mobility decreased [Not Recovered/Not Resolved]
  - Personality change [Not Recovered/Not Resolved]

NARRATIVE: CASE EVENT DATE: 201902
